FAERS Safety Report 13400037 (Version 1)
Quarter: 2017Q2

REPORT INFORMATION
  Report Type: Spontaneous
  Country: IT (occurrence: IT)
  Receive Date: 20170404
  Receipt Date: 20170404
  Transmission Date: 20170830
  Serious: Yes (Hospitalization)
  Sender: FDA-Public Use
  Company Number: IT-SUN PHARMACEUTICAL INDUSTRIES LTD-2017RR-131643

PATIENT
  Age: 69 Year
  Sex: Male

DRUGS (6)
  1. PRETERAX [Suspect]
     Active Substance: INDAPAMIDE\PERINDOPRIL
     Indication: PRODUCT USED FOR UNKNOWN INDICATION
     Dosage: 1 DF DAILY
     Route: 048
  2. EPIRUBICIN HYDROCHLORIDE. [Suspect]
     Active Substance: EPIRUBICIN HYDROCHLORIDE
     Indication: GASTRIC NEOPLASM
     Dosage: 92 MG TOTAL
     Route: 042
     Dates: start: 20161216, end: 20161216
  3. IVEMEND 115 MG [Concomitant]
     Indication: PREMEDICATION
     Dosage: 150 MG
     Route: 042
     Dates: start: 20161216, end: 20161216
  4. OXALIPLATINO SUN 5 MG/ML, CONCENTRATO PER SOLUZIONE PER INFUSIONE [Suspect]
     Active Substance: OXALIPLATIN
     Indication: GASTRIC NEOPLASM
     Dosage: 240 MG TOTAL
     Route: 042
     Dates: start: 20161216, end: 20161216
  5. ONDANSETRON [Concomitant]
     Active Substance: ONDANSETRON
     Indication: PREMEDICATION
     Dosage: 8 MG
     Route: 042
     Dates: start: 20161216, end: 20161216
  6. CAPECITABINA MEDAC [Suspect]
     Active Substance: CAPECITABINE
     Indication: GASTRIC NEOPLASM
     Dosage: 2300 MG DAILY
     Route: 048
     Dates: start: 20161216, end: 20161216

REACTIONS (3)
  - Septic shock [Not Recovered/Not Resolved]
  - Acute kidney injury [Not Recovered/Not Resolved]
  - Diarrhoea [Not Recovered/Not Resolved]

NARRATIVE: CASE EVENT DATE: 20161223
